FAERS Safety Report 11744087 (Version 2)
Quarter: 2015Q4

REPORT INFORMATION
  Report Type: Spontaneous
  Country: NL (occurrence: NL)
  Receive Date: 20151116
  Receipt Date: 20151120
  Transmission Date: 20160304
  Serious: Yes (Death)
  Sender: FDA-Public Use
  Company Number: PHHY2015NL145481

PATIENT
  Age: 83 Year
  Sex: Female

DRUGS (8)
  1. ETORICOXIB [Concomitant]
     Active Substance: ETORICOXIB
     Indication: PRODUCT USED FOR UNKNOWN INDICATION
     Dosage: 1 DF, UNK
     Route: 048
     Dates: start: 201411
  2. OXYCODON [Concomitant]
     Active Substance: OXYCODONE
     Indication: PRODUCT USED FOR UNKNOWN INDICATION
     Dosage: 1 DF, UNK
     Route: 048
     Dates: start: 2014
  3. PREGABALINE [Concomitant]
     Active Substance: PREGABALIN
     Indication: PRODUCT USED FOR UNKNOWN INDICATION
     Dosage: 1 DF, UNK
     Route: 048
     Dates: start: 2014
  4. COLECALCIFEROL [Concomitant]
     Active Substance: CHOLECALCIFEROL
     Indication: PRODUCT USED FOR UNKNOWN INDICATION
     Dosage: 1 DF, UNK
     Route: 048
     Dates: start: 201502
  5. AZITHROMYCIN [Suspect]
     Active Substance: AZITHROMYCIN ANHYDROUS
     Indication: PNEUMONIA
     Dosage: 1 DF, UNK
     Route: 048
     Dates: start: 20151020
  6. CARBAMAZEPIN [Concomitant]
     Active Substance: CARBAMAZEPINE
     Indication: PRODUCT USED FOR UNKNOWN INDICATION
     Dosage: 1 DF, UNK
     Route: 048
     Dates: start: 2014
  7. ACENOCOUMAROL [Interacting]
     Active Substance: ACENOCOUMAROL
     Indication: PERIPHERAL ARTERY THROMBOSIS
     Dosage: 1 DF, (SCHEDULED THROMBOSIS) (WEEKLY SCHEDULE 3-2-2-2-2-2-2MG)
     Route: 048
     Dates: start: 2006
  8. RABEPRAZOL [Concomitant]
     Indication: PRODUCT USED FOR UNKNOWN INDICATION
     Dosage: 1 DF, UNK
     Route: 048
     Dates: start: 201502

REACTIONS (2)
  - International normalised ratio abnormal [Fatal]
  - Drug interaction [Fatal]

NARRATIVE: CASE EVENT DATE: 20151020
